FAERS Safety Report 8877712 (Version 1)
Quarter: 2012Q4

REPORT INFORMATION
  Report Type: 
  Country: US (occurrence: US)
  Receive Date: 20121024
  Receipt Date: 20121024
  Transmission Date: 20130627
  Serious: Yes (Other)
  Sender: FDA-Public Use
  Company Number: US-PFIZER INC-2012263694

PATIENT
  Sex: Male

DRUGS (2)
  1. VIAGRA [Suspect]
     Dosage: 100 mg, every other day
  2. VIAGRA [Suspect]
     Dosage: 50 mg (half of 100mg), UNK

REACTIONS (1)
  - Eye haemorrhage [Unknown]
